FAERS Safety Report 6121030-8 (Version None)
Quarter: 2009Q1

REPORT INFORMATION
  Report Type: 
  Country: None (occurrence: None)
  Receive Date: 20090317
  Receipt Date: 20090306
  Transmission Date: 20090719
  Serious: Yes (Disabling)
  Sender: FDA-Public Use
  Company Number: PHHY2008JP03659

PATIENT
  Sex: Female

DRUGS (4)
  1. ZOMETA [Suspect]
     Indication: BREAST CANCER
     Dosage: 4 MG, UNK
     Route: 041
     Dates: start: 20061025, end: 20070425
  2. AREDIA [Suspect]
     Dosage: 45 MG, EVERY TWO WEEKS
     Route: 042
     Dates: start: 20030801, end: 20060920
  3. NAVELBINE [Concomitant]
     Dosage: 30 MG/ DAY
     Route: 042
     Dates: start: 20061025, end: 20070328
  4. HERCEPTIN [Concomitant]
     Dosage: 84 MG / DAY
     Route: 042
     Dates: start: 20061025, end: 20070328

REACTIONS (4)
  - HYPOCALCAEMIA [None]
  - OSTEONECROSIS [None]
  - PAIN IN JAW [None]
  - SWELLING [None]
